FAERS Safety Report 20569992 (Version 1)
Quarter: 2022Q1

REPORT INFORMATION
  Report Type: Spontaneous
  Country: GB (occurrence: GB)
  Receive Date: 20220309
  Receipt Date: 20220309
  Transmission Date: 20220423
  Serious: Yes (Other)
  Sender: FDA-Public Use
  Company Number: GB-KOREA IPSEN Pharma-2022-04185

PATIENT
  Sex: Male

DRUGS (3)
  1. BICALUTAMIDE [Suspect]
     Active Substance: BICALUTAMIDE
     Indication: Product used for unknown indication
     Dosage: UNK
     Route: 065
  2. TRIPTORELIN [Suspect]
     Active Substance: TRIPTORELIN
     Indication: Product used for unknown indication
     Dosage: 3 MG (STRENGTH: UNKNOWN), POWDER AND SOLVENT FOR SUSPENSION FOR INJECTION
     Route: 065
     Dates: start: 20220207
  3. TRIPTORELIN [Suspect]
     Active Substance: TRIPTORELIN
     Dosage: NOT REPORTED (STRENGTH: UNKNOWN), POWDER AND SOLVENT FOR SUSPENSION FOR INJECTION
     Route: 065

REACTIONS (5)
  - Jaundice [Unknown]
  - Dyspnoea [Unknown]
  - Malaise [Unknown]
  - Haemoglobin decreased [Unknown]
  - Serum ferritin increased [Unknown]

NARRATIVE: CASE EVENT DATE: 20220201
